FAERS Safety Report 6048434-6 (Version None)
Quarter: 2009Q1

REPORT INFORMATION
  Report Type: 
  Country: None (occurrence: None)
  Receive Date: 20090123
  Receipt Date: 20090119
  Transmission Date: 20090719
  Serious: Yes (Other)
  Sender: FDA-Public Use
  Company Number: A0764613A

PATIENT
  Age: 50 Year
  Sex: Male
  Weight: 64 kg

DRUGS (4)
  1. VALTREX [Suspect]
     Indication: HERPES ZOSTER
     Dosage: 1000MG THREE TIMES PER DAY
     Route: 048
     Dates: start: 20090109, end: 20090114
  2. AAS [Concomitant]
     Dates: start: 20090111
  3. COLCHICINE [Concomitant]
     Dates: start: 19890101
  4. CALCITRIOL [Concomitant]
     Dates: start: 20090102

REACTIONS (5)
  - ABNORMAL BEHAVIOUR [None]
  - AGGRESSION [None]
  - CRYING [None]
  - HALLUCINATION [None]
  - INAPPROPRIATE AFFECT [None]
